FAERS Safety Report 8976801 (Version 1)
Quarter: 2012Q4

REPORT INFORMATION
  Report Type: Report from Study
  Country: GB (occurrence: GB)
  Receive Date: 20121220
  Receipt Date: 20121220
  Transmission Date: 20130627
  Serious: Yes (Hospitalization)
  Sender: FDA-Public Use
  Company Number: GB-CELGENEUS-167-20785-12120521

PATIENT
  Age: 75 Year
  Sex: Male

DRUGS (3)
  1. THALIDOMIDE [Suspect]
     Indication: MYELOMA
     Dosage: 100 Milligram
     Route: 048
     Dates: start: 20121126
  2. DEXAMETHASONE [Suspect]
     Indication: MYELOMA
     Route: 048
     Dates: start: 20121126
  3. CYCLOPHOSPHAMIDE [Suspect]
     Indication: MYELOMA
     Dosage: 71.4286 Milligram
     Route: 048
     Dates: start: 20121126

REACTIONS (2)
  - Drug hypersensitivity [Recovered/Resolved]
  - Viral infection [Recovered/Resolved]
